FAERS Safety Report 12436186 (Version 1)
Quarter: 2016Q2

REPORT INFORMATION
  Report Type: Spontaneous
  Country: US (occurrence: US)
  Receive Date: 20160605
  Receipt Date: 20160605
  Transmission Date: 20160815
  Serious: No
  Sender: FDA-Public Use
  Company Number: US-BIOGEN-2016BI00236108

PATIENT
  Sex: Female

DRUGS (1)
  1. AVONEX [Suspect]
     Active Substance: INTERFERON BETA-1A
     Indication: MULTIPLE SCLEROSIS
     Dates: start: 20121129, end: 20141201

REACTIONS (3)
  - Multiple sclerosis [Recovered/Resolved]
  - Stress [Recovered/Resolved]
  - Central nervous system lesion [Not Recovered/Not Resolved]
